FAERS Safety Report 20998878 (Version 3)
Quarter: 2022Q3

REPORT INFORMATION
  Report Type: Report from Study
  Country: US (occurrence: US)
  Receive Date: 20220623
  Receipt Date: 20220630
  Transmission Date: 20221026
  Serious: No
  Sender: FDA-Public Use
  Company Number: US-NOVARTISTESTPH-NVSC2022US143909

PATIENT
  Sex: Female

DRUGS (1)
  1. TASIGNA [Suspect]
     Active Substance: NILOTINIB
     Indication: Philadelphia positive chronic myeloid leukaemia
     Dosage: 300 MG, BID
     Route: 048

REACTIONS (6)
  - Oropharyngeal pain [Unknown]
  - Neck pain [Unknown]
  - Photosensitivity reaction [Unknown]
  - Pruritus [Unknown]
  - Peripheral swelling [Unknown]
  - Constipation [Unknown]
